FAERS Safety Report 6109570-9 (Version None)
Quarter: 2009Q1

REPORT INFORMATION
  Report Type: 
  Country: None (occurrence: None)
  Receive Date: 20090310
  Receipt Date: 20090225
  Transmission Date: 20090719
  Serious: Yes (Hospitalization)
  Sender: FDA-Public Use
  Company Number: FR-JNJFOC-20090301717

PATIENT
  Sex: Female

DRUGS (8)
  1. ZALDIAR [Suspect]
     Indication: PAIN
     Route: 048
  2. PAROXETINE HCL [Suspect]
     Indication: DEPRESSION
     Route: 048
  3. TETRAZEPAM [Suspect]
     Indication: MUSCLE TWITCHING
     Route: 048
  4. ZOPICLONE [Suspect]
     Indication: INSOMNIA
     Route: 048
  5. ERCEFURYL [Concomitant]
  6. LACTEOL [Concomitant]
  7. CEBUTID [Concomitant]
  8. LOPERAMIDE HCL [Concomitant]

REACTIONS (5)
  - CONFUSIONAL STATE [None]
  - COORDINATION ABNORMAL [None]
  - FALL [None]
  - PANIC DISORDER [None]
  - SPEECH DISORDER [None]
